FAERS Safety Report 4876612-8 (Version None)
Quarter: 2006Q1

REPORT INFORMATION
  Report Type: 
  Country: None (occurrence: None)
  Receive Date: 20060110
  Receipt Date: 20041220
  Transmission Date: 20060701
  Serious: Yes (Disabling, Other)
  Sender: FDA-Public Use
  Company Number: US-MERCK-0412USA02605

PATIENT
  Age: 37 Year
  Sex: Female
  Weight: 55 kg

DRUGS (2)
  1. VIOXX [Suspect]
     Indication: PAIN
     Route: 048
  2. TYLENOL [Concomitant]
     Route: 065

REACTIONS (4)
  - CATHETER RELATED COMPLICATION [None]
  - MYOCARDIAL INFARCTION [None]
  - THROMBOSIS [None]
  - UTERINE DISORDER [None]
